FAERS Safety Report 9353113 (Version 1)
Quarter: 2013Q2

REPORT INFORMATION
  Report Type: Spontaneous
  Country: US (occurrence: None)
  Receive Date: 20130612
  Receipt Date: 20130612
  Transmission Date: 20140414
  Serious: Yes (Hospitalization)
  Sender: FDA-Public Use
  Company Number: PR-AE13-000623

PATIENT
  Sex: Female
  Weight: 54.43 kg

DRUGS (2)
  1. TAGAMET (CIMETIDE) [Suspect]
     Route: 048
  2. NEXIUM [Suspect]
     Route: 048

REACTIONS (9)
  - Organising pneumonia [None]
  - Pulmonary fibrosis [None]
  - Chronic obstructive pulmonary disease [None]
  - Colitis ulcerative [None]
  - Pain [None]
  - Weight decreased [None]
  - Lung disorder [None]
  - Gastric disorder [None]
  - Drug ineffective [None]
